FAERS Safety Report 5565027-5 (Version None)
Quarter: 2007Q4

REPORT INFORMATION
  Report Type: 
  Country: None (occurrence: None)
  Receive Date: 20071218
  Receipt Date: 20071206
  Transmission Date: 20080405
  Serious: No
  Sender: FDA-Public Use
  Company Number: US-BAYER-200712748BCC

PATIENT
  Age: 78 Year
  Sex: Female
  Weight: 64 kg

DRUGS (1)
  1. ALEVE [Suspect]
     Indication: MYALGIA
     Dosage: UNIT DOSE: 220 MG
     Route: 048
     Dates: start: 20070823

REACTIONS (1)
  - FATIGUE [None]
